FAERS Safety Report 23098082 (Version 1)
Quarter: 2023Q4

REPORT INFORMATION
  Report Type: Report from Study
  Country: CA (occurrence: CA)
  Receive Date: 20231023
  Receipt Date: 20231023
  Transmission Date: 20240109
  Serious: Yes (Hospitalization, Other)
  Sender: FDA-Public Use
  Company Number: CA-SANDOZ-SDZ2023CA009389

PATIENT
  Sex: Male

DRUGS (1)
  1. ERELZI [Suspect]
     Active Substance: ETANERCEPT-SZZS
     Indication: Juvenile idiopathic arthritis
     Dosage: 50 MG
     Route: 058
     Dates: start: 20230425

REACTIONS (7)
  - Seizure [Unknown]
  - Renal disorder [Unknown]
  - Hepatic enzyme increased [Unknown]
  - Urticaria [Unknown]
  - Anaphylactic reaction [Unknown]
  - Injection site pain [Unknown]
  - Type IV hypersensitivity reaction [Unknown]
